FAERS Safety Report 5811248-3 (Version None)
Quarter: 2008Q3

REPORT INFORMATION
  Report Type: 
  Country: None (occurrence: None)
  Receive Date: 20080710
  Receipt Date: 20080701
  Transmission Date: 20090109
  Serious: Yes (Other)
  Sender: FDA-Public Use
  Company Number: 6043987

PATIENT
  Age: 70 Year
  Sex: Male

DRUGS (2)
  1. CONCOR (BISOPROLOL FUMARATE) [Suspect]
     Indication: ARRHYTHMIA
     Dosage: 2.5 MG (2.5 MG, 1 IN 1 D) ORAL
     Route: 048
     Dates: start: 20070101, end: 20080101
  2. CONCOR (BISOPROLOL FUMARATE) [Suspect]
     Indication: HYPERTENSION
     Dosage: 2.5 MG (2.5 MG, 1 IN 1 D) ORAL
     Route: 048
     Dates: start: 20070101, end: 20080101

REACTIONS (3)
  - ALCOHOL INTOLERANCE [None]
  - MYALGIA [None]
  - POLYNEUROPATHY [None]
